FAERS Safety Report 9467632 (Version 1)
Quarter: 2013Q3

REPORT INFORMATION
  Report Type: Spontaneous
  Country: FR (occurrence: FR)
  Receive Date: 20130821
  Receipt Date: 20130821
  Transmission Date: 20140515
  Serious: Yes (Life-Threatening)
  Sender: FDA-Public Use
  Company Number: PHHY2013FR089994

PATIENT
  Age: 88 Year
  Sex: Male

DRUGS (9)
  1. ESIDREX [Suspect]
     Indication: CARDIAC FAILURE
     Dosage: 25 MG, UNK
     Route: 048
     Dates: end: 20130302
  2. ESIDREX [Suspect]
     Dosage: 25 MG, DAILY
  3. LASILIX [Suspect]
     Indication: CARDIAC FAILURE
     Dosage: 40 MG, TID
     Route: 048
  4. EFFEXOR [Concomitant]
     Dosage: 37.5 MG, QD
     Route: 048
  5. ALLOPURINOL [Concomitant]
     Dosage: 100 MG, QD
     Route: 048
  6. PREVISCAN [Concomitant]
     Indication: PROPHYLAXIS
     Dosage: 0.75 DF, UNK
     Route: 048
  7. ARANESP [Concomitant]
     Dosage: 40 UG, QW
     Route: 058
  8. TAHOR [Concomitant]
     Route: 048
  9. IMOVANE [Concomitant]
     Dosage: 7.5 MG, QD
     Route: 048

REACTIONS (1)
  - Hypokalaemia [Recovered/Resolved]
